FAERS Safety Report 11454467 (Version 1)
Quarter: 2015Q3

REPORT INFORMATION
  Report Type: Spontaneous
  Country: US (occurrence: US)
  Receive Date: 20150831
  Receipt Date: 20150831
  Transmission Date: 20151125
  Serious: No
  Sender: FDA-Public Use
  Company Number: US-ELI_LILLY_AND_COMPANY-US201003008065

PATIENT
  Sex: Female

DRUGS (4)
  1. CYMBALTA [Suspect]
     Active Substance: DULOXETINE HYDROCHLORIDE
     Indication: MAJOR DEPRESSION
     Dosage: 60 MG, UNK
     Route: 048
     Dates: start: 200907
  2. NASONEX [Concomitant]
     Active Substance: MOMETASONE FUROATE
  3. CLONOPIN [Concomitant]
     Active Substance: CLONAZEPAM
  4. NEXIUM [Concomitant]
     Active Substance: ESOMEPRAZOLE MAGNESIUM

REACTIONS (3)
  - Dry eye [Recovered/Resolved]
  - Blood pressure increased [Recovered/Resolved]
  - Dry mouth [Recovered/Resolved]
